FAERS Safety Report 7607569-4 (Version None)
Quarter: 2011Q3

REPORT INFORMATION
  Report Type: 
  Country: None (occurrence: None)
  Receive Date: 20110713
  Receipt Date: 20110704
  Transmission Date: 20111222
  Serious: Yes (Hospitalization)
  Sender: FDA-Public Use
  Company Number: PHHY2011DE59539

PATIENT
  Age: 64 Year
  Sex: Female

DRUGS (3)
  1. ZOMETA [Suspect]
     Indication: BREAST CANCER FEMALE
     Dosage: UNK
     Route: 042
     Dates: start: 20060101, end: 20081201
  2. CORTISONE ACETATE [Concomitant]
  3. ZOMETA [Suspect]
     Dosage: UNK
     Route: 042
     Dates: start: 20100401, end: 20100601

REACTIONS (1)
  - OSTEOMYELITIS [None]
